FAERS Safety Report 7772655-5 (Version None)
Quarter: 2011Q3

REPORT INFORMATION
  Report Type: 
  Country: None (occurrence: None)
  Receive Date: 20110922
  Receipt Date: 20110523
  Transmission Date: 20111222
  Serious: No
  Sender: FDA-Public Use
  Company Number: US-ASTRAZENECA-2011SE31315

PATIENT
  Age: 95 Year
  Sex: Female

DRUGS (4)
  1. SEROQUEL XR [Suspect]
     Route: 048
  2. SEROQUEL XR [Suspect]
     Indication: DEMENTIA
     Route: 048
  3. SEROQUEL XR [Suspect]
     Route: 048
  4. SEROQUEL XR [Suspect]
     Indication: ANGER
     Route: 048

REACTIONS (3)
  - OFF LABEL USE [None]
  - HYPERSOMNIA [None]
  - WRONG TECHNIQUE IN DRUG USAGE PROCESS [None]
